FAERS Safety Report 5959733-8 (Version None)
Quarter: 2008Q4

REPORT INFORMATION
  Report Type: 
  Country: None (occurrence: None)
  Receive Date: 20081119
  Receipt Date: 20081119
  Transmission Date: 20090506
  Serious: No
  Sender: FDA-Public Use
  Company Number: None

PATIENT
  Age: 71 Year
  Sex: Male

DRUGS (7)
  1. WARFARIN SODIUM [Suspect]
     Indication: ATRIAL FIBRILLATION
     Dosage: 7.5 MG PO QD
     Route: 048
  2. DIGOXIN [Concomitant]
  3. LANSOPRAZOLE [Concomitant]
  4. SPIRONOLACTONE [Concomitant]
  5. LEVOTHYROXINE SODIUM [Concomitant]
  6. CETRIZINE [Concomitant]
  7. CARVEDILOL [Concomitant]

REACTIONS (6)
  - BACK PAIN [None]
  - COUGH [None]
  - FATIGUE [None]
  - HYPOTENSION [None]
  - INTERNATIONAL NORMALISED RATIO INCREASED [None]
  - MALAISE [None]
